FAERS Safety Report 6755100-8 (Version None)
Quarter: 2010Q2

REPORT INFORMATION
  Report Type: 
  Country: None (occurrence: None)
  Receive Date: 20100604
  Receipt Date: 20100526
  Transmission Date: 20101027
  Serious: Yes (Hospitalization)
  Sender: FDA-Public Use
  Company Number: US-BIOGENIDEC-2010BI017966

PATIENT
  Age: 64 Year
  Sex: Female

DRUGS (2)
  1. AVONEX [Suspect]
     Indication: MULTIPLE SCLEROSIS
     Route: 030
     Dates: start: 20000807, end: 20030101
  2. AVONEX [Suspect]
     Route: 030
     Dates: start: 20040501

REACTIONS (1)
  - MYOCARDIAL INFARCTION [None]
